FAERS Safety Report 8991259 (Version 17)
Quarter: 2021Q4

REPORT INFORMATION
  Report Type: Other
  Country: CA (occurrence: CA)
  Receive Date: 20121231
  Receipt Date: 20211112
  Transmission Date: 20220303
  Serious: Yes (Other)
  Sender: FDA-Public Use
  Company Number: CA-ROCHE-1170752

PATIENT
  Age: 71 Year
  Sex: Male
  Weight: 88 kg

DRUGS (29)
  1. XOLAIR [Suspect]
     Active Substance: OMALIZUMAB
     Indication: Asthma
     Route: 058
     Dates: start: 20060208
  2. XOLAIR [Suspect]
     Active Substance: OMALIZUMAB
     Indication: Asthma
     Route: 058
     Dates: start: 20091216
  3. XOLAIR [Suspect]
     Active Substance: OMALIZUMAB
     Route: 058
     Dates: start: 20090408
  4. XOLAIR [Suspect]
     Active Substance: OMALIZUMAB
     Route: 058
     Dates: start: 20130415
  5. XOLAIR [Suspect]
     Active Substance: OMALIZUMAB
     Route: 058
     Dates: start: 20130513
  6. XOLAIR [Suspect]
     Active Substance: OMALIZUMAB
     Route: 058
     Dates: start: 20131028
  7. XOLAIR [Suspect]
     Active Substance: OMALIZUMAB
     Route: 058
     Dates: start: 20140204
  8. XOLAIR [Suspect]
     Active Substance: OMALIZUMAB
     Route: 058
     Dates: start: 20140429
  9. XOLAIR [Suspect]
     Active Substance: OMALIZUMAB
     Route: 058
     Dates: start: 20150914
  10. XOLAIR [Suspect]
     Active Substance: OMALIZUMAB
     Route: 058
     Dates: start: 20151013
  11. XOLAIR [Suspect]
     Active Substance: OMALIZUMAB
     Route: 058
     Dates: start: 20161207
  12. XOLAIR [Suspect]
     Active Substance: OMALIZUMAB
     Route: 058
     Dates: start: 20170308
  13. XOLAIR [Suspect]
     Active Substance: OMALIZUMAB
     Route: 058
     Dates: start: 20170405
  14. XOLAIR [Suspect]
     Active Substance: OMALIZUMAB
     Route: 058
     Dates: start: 20170503
  15. XOLAIR [Suspect]
     Active Substance: OMALIZUMAB
     Route: 058
     Dates: start: 20170605
  16. XOLAIR [Suspect]
     Active Substance: OMALIZUMAB
     Route: 058
     Dates: start: 20170628
  17. XOLAIR [Suspect]
     Active Substance: OMALIZUMAB
     Route: 058
     Dates: start: 20170728
  18. XOLAIR [Suspect]
     Active Substance: OMALIZUMAB
     Route: 058
     Dates: start: 20170803
  19. XOLAIR [Suspect]
     Active Substance: OMALIZUMAB
     Route: 058
     Dates: start: 20170927
  20. XOLAIR [Suspect]
     Active Substance: OMALIZUMAB
     Route: 058
     Dates: start: 20180115
  21. XOLAIR [Suspect]
     Active Substance: OMALIZUMAB
     Route: 058
     Dates: start: 20180208
  22. XOLAIR [Suspect]
     Active Substance: OMALIZUMAB
     Route: 058
  23. HYZAAR [Concomitant]
     Active Substance: HYDROCHLOROTHIAZIDE\LOSARTAN POTASSIUM
     Indication: Product used for unknown indication
     Dosage: DOSE INCREASED
     Route: 048
     Dates: start: 20070524
  24. IMODIUM [Concomitant]
     Active Substance: LOPERAMIDE HYDROCHLORIDE
     Indication: Product used for unknown indication
     Route: 065
  25. FLUTICASONE FUROATE [Concomitant]
     Active Substance: FLUTICASONE FUROATE
     Indication: Product used for unknown indication
     Route: 065
  26. UMECLIDINIUM [Concomitant]
     Active Substance: UMECLIDINIUM
     Indication: Product used for unknown indication
     Route: 065
  27. BRICANYL [Concomitant]
     Active Substance: TERBUTALINE SULFATE
     Indication: Product used for unknown indication
     Route: 065
  28. PREDNISONE [Concomitant]
     Active Substance: PREDNISONE
     Route: 065
  29. PREDNISONE [Concomitant]
     Active Substance: PREDNISONE

REACTIONS (44)
  - Respiratory tract infection [Unknown]
  - Bronchitis [Unknown]
  - Pneumonia [Unknown]
  - Hypoventilation [Recovered/Resolved]
  - Sputum discoloured [Unknown]
  - Wheezing [Recovering/Resolving]
  - Dyspnoea [Unknown]
  - Asthenia [Recovering/Resolving]
  - Chest discomfort [Recovered/Resolved]
  - Breath sounds abnormal [Unknown]
  - Candida infection [Unknown]
  - Insomnia [Not Recovered/Not Resolved]
  - Respiratory tract congestion [Recovered/Resolved]
  - Nasal congestion [Unknown]
  - Dyspnoea exertional [Unknown]
  - Blood pressure increased [Recovering/Resolving]
  - Tension [Unknown]
  - Dry eye [Unknown]
  - Abdominal pain upper [Unknown]
  - Body temperature decreased [Unknown]
  - Atelectasis [Unknown]
  - Eye pruritus [Unknown]
  - Increased upper airway secretion [Unknown]
  - Lung disorder [Unknown]
  - Throat irritation [Unknown]
  - Pyrexia [Unknown]
  - Influenza [Unknown]
  - Herpes zoster [Unknown]
  - Skin reaction [Recovered/Resolved]
  - Blister [Recovered/Resolved]
  - Rash pruritic [Unknown]
  - Rash pustular [Unknown]
  - Muscle contracture [Not Recovered/Not Resolved]
  - Musculoskeletal chest pain [Unknown]
  - Wound complication [Unknown]
  - Oropharyngeal pain [Unknown]
  - Diarrhoea [Recovered/Resolved]
  - Cough [Recovering/Resolving]
  - Hypersensitivity [Unknown]
  - Fatigue [Recovering/Resolving]
  - Asthma [Unknown]
  - Nasopharyngitis [Unknown]
  - Somnolence [Unknown]
  - Inappropriate schedule of product administration [Unknown]

NARRATIVE: CASE EVENT DATE: 20150914
